FAERS Safety Report 4309017-9 (Version None)
Quarter: 2004Q1

REPORT INFORMATION
  Report Type: 
  Country: None (occurrence: None)
  Receive Date: 20040302
  Receipt Date: 20040226
  Transmission Date: 20041129
  Serious: Yes (Death, Hospitalization, Other)
  Sender: FDA-Public Use
  Company Number: FR-BRISTOL-MYERS SQUIBB COMPANY-12518833

PATIENT
  Age: 67 Year
  Sex: Female

DRUGS (3)
  1. TAXOL [Suspect]
     Indication: BREAST CANCER
     Route: 042
     Dates: start: 20030822, end: 20030829
  2. TAXOTERE [Suspect]
     Indication: BREAST CANCER
     Route: 042
     Dates: start: 20010411, end: 20030911
  3. HERCEPTIN [Concomitant]
     Dates: start: 20030822, end: 20030911

REACTIONS (5)
  - ANAEMIA [None]
  - BREAST CANCER METASTATIC [None]
  - FEBRILE NEUTROPENIA [None]
  - STEVENS-JOHNSON SYNDROME [None]
  - THROMBOCYTOPENIA [None]
